FAERS Safety Report 10704762 (Version 2)
Quarter: 2014Q4

REPORT INFORMATION
  Report Type: Spontaneous
  Country: CA (occurrence: CA)
  Receive Date: 20141105
  Receipt Date: 20141105
  Transmission Date: 20150529
  Serious: Yes (Hospitalization, Other)
  Sender: FDA-Public Use
  Company Number: CA-APOTEX-2014AP005360

PATIENT
  Age: 68 Year
  Sex: Male

DRUGS (7)
  1. OXITRIPTAN [Suspect]
     Active Substance: OXITRIPTAN
     Indication: TONIC CONVULSION
     Dosage: 400 MG, TID
     Route: 065
  2. PHENYTOIN. [Concomitant]
     Active Substance: PHENYTOIN
     Dosage: 125 MG, Q.H.S.
     Route: 065
  3. APO-LEVETIRACETAM [Suspect]
     Active Substance: LEVETIRACETAM
     Indication: TONIC CONVULSION
     Dosage: 1500 MG, BID
     Route: 065
  4. PHENYTOIN. [Concomitant]
     Active Substance: PHENYTOIN
     Indication: TONIC CONVULSION
     Dosage: 75 MG, Q.AM
     Route: 065
  5. CARBIDOPA. [Suspect]
     Active Substance: CARBIDOPA
     Indication: GASTROINTESTINAL DISORDER
  6. APO-VALPROIC [Suspect]
     Active Substance: VALPROIC ACID
     Indication: TONIC CONVULSION
     Dosage: 650 MG, QID
     Route: 065
  7. CARBIDOPA. [Suspect]
     Active Substance: CARBIDOPA
     Indication: PROPHYLAXIS
     Route: 065

REACTIONS (3)
  - Serotonin syndrome [Unknown]
  - Somnolence [Recovering/Resolving]
  - Myoclonus [Recovering/Resolving]

NARRATIVE: CASE EVENT DATE: 20120130
